FAERS Safety Report 8314178-0 (Version None)
Quarter: 2012Q2

REPORT INFORMATION
  Report Type: 
  Country: None (occurrence: None)
  Receive Date: 20120426
  Receipt Date: 20120417
  Transmission Date: 20120825
  Serious: Yes (Other)
  Sender: FDA-Public Use
  Company Number: PHHY2011US00573

PATIENT
  Sex: Female

DRUGS (17)
  1. DOXEPIN [Concomitant]
  2. CALCIUM [Concomitant]
  3. FIBER [Concomitant]
  4. VITAMIN B-12 [Concomitant]
  5. ZINC SULFATE [Concomitant]
  6. VITAMIN D [Concomitant]
  7. POTASSIUM CHLORIDE [Concomitant]
  8. AFINITOR [Suspect]
     Dosage: 12.5 MG, QD
  9. MULTI-VITAMINS [Concomitant]
  10. AFINITOR [Suspect]
     Indication: TUBEROUS SCLEROSIS
     Dosage: 5 MG, QD
     Route: 048
     Dates: start: 20101227
  11. AFINITOR [Suspect]
     Dosage: 10 MG, QD
  12. RUFINAMIDE [Concomitant]
  13. MAGNESIUM [Concomitant]
  14. TOPAMAX [Concomitant]
  15. LAMOTRGINE [Concomitant]
  16. PROGESTERONE [Concomitant]
  17. KLONOPIN [Concomitant]

REACTIONS (7)
  - NAUSEA [None]
  - ATONIC SEIZURES [None]
  - PINEAL GLAND CYST [None]
  - DRUG LEVEL BELOW THERAPEUTIC [None]
  - BRAIN MASS [None]
  - RASH ERYTHEMATOUS [None]
  - RASH [None]
